FAERS Safety Report 12780224 (Version 1)
Quarter: 2016Q3

REPORT INFORMATION
  Report Type: Spontaneous
  Country: US (occurrence: US)
  Receive Date: 20160923
  Receipt Date: 20160923
  Transmission Date: 20161109
  Serious: Yes (Life-Threatening, Disabling)
  Sender: FDA-Public Use
  Company Number: None

PATIENT
  Age: 43 Year
  Sex: Female
  Weight: 67.5 kg

DRUGS (3)
  1. METAPROLOL [Concomitant]
     Active Substance: METOPROLOL
  2. BUPROPION HCL SR 100 MG SOLCO HEALTHCARE [Suspect]
     Active Substance: BUPROPION HYDROCHLORIDE
     Indication: DEPRESSION
     Route: 048
  3. ASPIRIN. [Concomitant]
     Active Substance: ASPIRIN

REACTIONS (11)
  - Nausea [None]
  - Headache [None]
  - Crying [None]
  - Thinking abnormal [None]
  - Dizziness [None]
  - Head discomfort [None]
  - Palpitations [None]
  - Neck pain [None]
  - Feeling jittery [None]
  - Irritability [None]
  - Vision blurred [None]

NARRATIVE: CASE EVENT DATE: 20160906
